FAERS Safety Report 19355581 (Version 3)
Quarter: 2021Q3

REPORT INFORMATION
  Report Type: Spontaneous
  Country: PT (occurrence: PT)
  Receive Date: 20210601
  Receipt Date: 20210802
  Transmission Date: 20211014
  Serious: Yes (Other)
  Sender: FDA-Public Use
  Company Number: 2021IS001409

PATIENT
  Age: 43 Year
  Sex: Female

DRUGS (4)
  1. MEXAZOLAM [Concomitant]
     Active Substance: MEXAZOLAM
     Route: 065
     Dates: start: 20200304
  2. TEGSEDI [Suspect]
     Active Substance: INOTERSEN SODIUM
     Indication: HEREDITARY NEUROPATHIC AMYLOIDOSIS
     Route: 058
     Dates: start: 20201110, end: 20210518
  3. TEGSEDI [Suspect]
     Active Substance: INOTERSEN SODIUM
     Indication: POLYNEUROPATHY
     Route: 058
     Dates: start: 20201110, end: 20210518
  4. ISSD (INTEGRATED SYRINGE SAFETY DEVICE) [Suspect]
     Active Substance: DEVICE

REACTIONS (3)
  - Alanine aminotransferase increased [Not Recovered/Not Resolved]
  - International normalised ratio abnormal [Unknown]
  - Aspartate aminotransferase increased [Not Recovered/Not Resolved]

NARRATIVE: CASE EVENT DATE: 20210511
